FAERS Safety Report 4748253-4 (Version None)
Quarter: 2005Q3

REPORT INFORMATION
  Report Type: 
  Country: None (occurrence: None)
  Receive Date: 20050818
  Receipt Date: 20050621
  Transmission Date: 20060218
  Serious: Yes (Hospitalization)
  Sender: FDA-Public Use
  Company Number: CZ-ABBOTT-05P-217-0303921-00

PATIENT
  Sex: Female

DRUGS (5)
  1. HUMIRA [Suspect]
     Indication: RHEUMATOID ARTHRITIS
     Route: 058
     Dates: start: 20050222, end: 20050405
  2. HUMIRA [Suspect]
     Route: 058
  3. HUMIRA [Suspect]
  4. METHYLPREDNISOLONE [Concomitant]
     Indication: DRUG USE FOR UNKNOWN INDICATION
     Dosage: 4/8 MG
     Dates: start: 20030101
  5. TIAPROFENIC ACID [Concomitant]
     Indication: DRUG USE FOR UNKNOWN INDICATION
     Dates: start: 20040101

REACTIONS (9)
  - DERMATITIS [None]
  - DRUG INTOLERANCE [None]
  - EOSINOPHILIA [None]
  - EXCORIATION [None]
  - LICHENIFICATION [None]
  - PRURIGO [None]
  - PRURITUS [None]
  - RASH MACULO-PAPULAR [None]
  - VASCULITIS [None]
